FAERS Safety Report 24423307 (Version 1)
Quarter: 2024Q4

REPORT INFORMATION
  Report Type: Spontaneous
  Country: CN (occurrence: CN)
  Receive Date: 20241010
  Receipt Date: 20241010
  Transmission Date: 20250115
  Serious: Yes (Other)
  Sender: BAXTER
  Company Number: None

PATIENT
  Age: 51 Year
  Sex: Female
  Weight: 51 kg

DRUGS (6)
  1. CYCLOPHOSPHAMIDE [Suspect]
     Active Substance: CYCLOPHOSPHAMIDE
     Indication: Breast cancer female
     Dosage: 0.8 G, ONE TIME IN ONE DAY, DILUTED WITH 100 ML OF 0.9% SODIUM CHLORIDE, THIRD CHEMOTHERAPY
     Route: 041
     Dates: start: 20240911, end: 20240911
  2. CYCLOPHOSPHAMIDE [Suspect]
     Active Substance: CYCLOPHOSPHAMIDE
     Dosage: 0.8 G, ONE TIME IN ONE DAY, CONTINUED CHEMOTHERAPY
     Route: 041
     Dates: start: 20240925
  3. SODIUM CHLORIDE [Suspect]
     Active Substance: SODIUM CHLORIDE
     Indication: Medication dilution
     Dosage: (0.9%) 100 ML, ONE TIME IN ONE DAY, USED TO DILUTE 0.8 G OF CYCLOPHOSPHAMIDE (DOSAGE FORM:INJECTION)
     Route: 041
     Dates: start: 20240911, end: 20240911
  4. SODIUM CHLORIDE [Suspect]
     Active Substance: SODIUM CHLORIDE
     Dosage: (0.9%) 250 ML, ONE TIME IN ONE DAY, USED TO DILUTE 140 MG OF EPIRUBICIN HYDROCHLORIDE (DOSAGE FORM:I
     Route: 041
     Dates: start: 20240911, end: 20240911
  5. EPIRUBICIN HYDROCHLORIDE [Suspect]
     Active Substance: EPIRUBICIN HYDROCHLORIDE
     Indication: Breast cancer female
     Dosage: 140 MG, ONE TIME IN ONE DAY, DILUTED WITH 250 ML OF 0.9% SODIUM CHLORIDE,THIRD CHEMOTHERAPY
     Route: 041
     Dates: start: 20240911, end: 20240911
  6. EPIRUBICIN HYDROCHLORIDE [Suspect]
     Active Substance: EPIRUBICIN HYDROCHLORIDE
     Dosage: 130 MG (DOSE REDUCED), ONE TIME IN ONE DAY, CONTINUED CHEMOTHERAPY
     Route: 041
     Dates: start: 20240925

REACTIONS (3)
  - Myelosuppression [Recovered/Resolved]
  - Granulocyte count decreased [Recovering/Resolving]
  - White blood cell count decreased [Recovering/Resolving]

NARRATIVE: CASE EVENT DATE: 20240918
